FAERS Safety Report 7725155-2 (Version None)
Quarter: 2011Q3

REPORT INFORMATION
  Report Type: 
  Country: None (occurrence: None)
  Receive Date: 20110901
  Receipt Date: 20110830
  Transmission Date: 20111222
  Serious: Yes (Disabling)
  Sender: FDA-Public Use
  Company Number: GB-MERCK-1108GBR00133

PATIENT
  Age: 68 Year
  Sex: Male
  Weight: 86 kg

DRUGS (4)
  1. OMEPRAZOLE [Concomitant]
     Route: 065
     Dates: start: 20110428, end: 20110815
  2. BISOPROLOL [Concomitant]
     Route: 065
     Dates: start: 20110428, end: 20110815
  3. ZOCOR [Suspect]
     Route: 048
     Dates: start: 20110428, end: 20110101
  4. RAMIPRIL [Concomitant]
     Route: 065
     Dates: start: 20110428, end: 20110815

REACTIONS (3)
  - MYALGIA [None]
  - MUSCULOSKELETAL STIFFNESS [None]
  - MUSCLE SPASMS [None]
